FAERS Safety Report 24159082 (Version 1)
Quarter: 2024Q3

REPORT INFORMATION
  Report Type: Other
  Country: US (occurrence: US)
  Receive Date: 20240731
  Receipt Date: 20240731
  Transmission Date: 20241016
  Serious: No
  Sender: TRAVERE THERAPEUTICS
  Company Number: US-TRAVERE-2024TVT00651

PATIENT
  Sex: Male

DRUGS (7)
  1. FILSPARI [Suspect]
     Active Substance: SPARSENTAN
     Indication: IgA nephropathy
     Route: 048
     Dates: start: 20230104
  2. CLARITIN [Concomitant]
     Active Substance: LORATADINE
  3. SIMETHICONE (DIMETHICONE) [Concomitant]
     Active Substance: DIMETHICONE
  4. TYLENOL [Concomitant]
     Active Substance: ACETAMINOPHEN
  5. FARXIGA [Concomitant]
     Active Substance: DAPAGLIFLOZIN PROPANEDIOL
  6. FISH OIL [Concomitant]
     Active Substance: FISH OIL
  7. FEBUXOSTAT [Concomitant]
     Active Substance: FEBUXOSTAT

REACTIONS (1)
  - Sinusitis [Unknown]
